FAERS Safety Report 24283173 (Version 1)
Quarter: 2024Q3

REPORT INFORMATION
  Report Type: Report from Study
  Country: US (occurrence: US)
  Receive Date: 20240904
  Receipt Date: 20240904
  Transmission Date: 20241016
  Serious: Yes (Other)
  Sender: Pyros Pharmaceuticals
  Company Number: US-PYROS PHARMACEUTICALS, INC-2024-PYROS-US000055

PATIENT
  Age: 0 Year
  Sex: Male
  Weight: 9.07 kg

DRUGS (1)
  1. VIGPODER [Suspect]
     Active Substance: VIGABATRIN
     Indication: Infantile spasms
     Dosage: 500 MG BID
     Route: 048
     Dates: start: 20240802

REACTIONS (3)
  - Change in seizure presentation [Recovering/Resolving]
  - Drug ineffective [Recovering/Resolving]
  - Product use complaint [Unknown]

NARRATIVE: CASE EVENT DATE: 20240802
